FAERS Safety Report 14938969 (Version 1)
Quarter: 2018Q2

REPORT INFORMATION
  Report Type: Report from Study
  Country: ZA (occurrence: ZA)
  Receive Date: 20180525
  Receipt Date: 20180525
  Transmission Date: 20180711
  Serious: Yes (Death)
  Sender: FDA-Public Use
  Company Number: ZA-LPDUSPRD-20180903

PATIENT
  Age: 44 Year
  Sex: Female

DRUGS (2)
  1. VENOFER [Suspect]
     Active Substance: IRON SUCROSE
     Dosage: UNKNOWN
     Route: 065
  2. COSMOFER [Concomitant]
     Active Substance: IRON DEXTRAN
     Dosage: UNKNOWN
     Route: 065
     Dates: start: 20110219

REACTIONS (2)
  - Lymphoma [Unknown]
  - Death [Fatal]

NARRATIVE: CASE EVENT DATE: 20120927
